FAERS Safety Report 22299675 (Version 1)
Quarter: 2023Q2

REPORT INFORMATION
  Report Type: Spontaneous
  Country: US (occurrence: None)
  Receive Date: 20230508
  Receipt Date: 20230508
  Transmission Date: 20230721
  Serious: Yes (Death)
  Sender: FDA-Public Use
  Company Number: None

PATIENT
  Age: 68 Year
  Sex: Female
  Weight: 70.4 kg

DRUGS (9)
  1. OCTREOTIDE [Suspect]
     Active Substance: OCTREOTIDE
     Indication: Colon cancer
     Dosage: OTHER STRENGTH : 100 UG/ML;?FREQUENCY : EVERY 6 HOURS;?
     Route: 048
     Dates: start: 20221229, end: 202304
  2. APPLE CIDER VINEGAR [Concomitant]
     Active Substance: APPLE CIDER VINEGAR
  3. CALCIUM [Concomitant]
     Active Substance: CALCIUM
  4. LOMOTIL [Concomitant]
     Active Substance: ATROPINE SULFATE\DIPHENOXYLATE HYDROCHLORIDE
  5. DIETARY SUPPLEMENT\HERBALS\MILK THISTLE [Concomitant]
     Active Substance: MILK THISTLE
  6. VITAMINS [Concomitant]
     Active Substance: VITAMINS
  7. NEXIUM [Concomitant]
     Active Substance: ESOMEPRAZOLE MAGNESIUM
  8. OPIUM [Concomitant]
     Active Substance: OPIUM
  9. PROBIOTIC-10 [Concomitant]

REACTIONS (1)
  - Death [None]
